FAERS Safety Report 23602615 (Version 1)
Quarter: 2024Q1

REPORT INFORMATION
  Report Type: Report from Study
  Country: US (occurrence: US)
  Receive Date: 20240306
  Receipt Date: 20240306
  Transmission Date: 20240410
  Serious: Yes (Other)
  Sender: FDA-Public Use
  Company Number: US-MYLANLABS-2024M1020370

PATIENT
  Sex: Male

DRUGS (23)
  1. PREDNISONE [Suspect]
     Active Substance: PREDNISONE
     Indication: Diffuse large B-cell lymphoma
     Dosage: UNK UNK, CYCLE; 5 CYCLES OF R-CHOP REGIMEN
     Route: 065
  2. PREDNISONE [Suspect]
     Active Substance: PREDNISONE
     Indication: Diffuse large B-cell lymphoma recurrent
     Dosage: UNK, CYCLE; LATER 2 CYCLES
     Route: 065
  3. PREDNISONE [Suspect]
     Active Substance: PREDNISONE
     Indication: Acute myeloid leukaemia
  4. PREDNISONE [Suspect]
     Active Substance: PREDNISONE
     Indication: 5q minus syndrome
  5. DOXORUBICIN [Suspect]
     Active Substance: DOXORUBICIN
     Indication: Diffuse large B-cell lymphoma
     Dosage: UNK, CYCLE; 5 CYCLES OF R-CHOP REGIMEN
     Route: 065
  6. AZACITIDINE [Suspect]
     Active Substance: AZACITIDINE
     Indication: Diffuse large B-cell lymphoma recurrent
     Dosage: UNK, CYCLE; 2 CYCLES
     Route: 065
  7. AZACITIDINE [Suspect]
     Active Substance: AZACITIDINE
     Indication: Acute myeloid leukaemia
  8. AZACITIDINE [Suspect]
     Active Substance: AZACITIDINE
     Indication: 5q minus syndrome
  9. RITUXIMAB [Suspect]
     Active Substance: RITUXIMAB
     Indication: Diffuse large B-cell lymphoma
     Dosage: UNK UNK, CYCLE; 5 CYCLES OF R-CHOP REGIMEN
     Route: 065
  10. CYCLOPHOSPHAMIDE [Suspect]
     Active Substance: CYCLOPHOSPHAMIDE
     Indication: Diffuse large B-cell lymphoma
     Dosage: UNK UNK, CYCLE; 5 CYCLES OF R-CHOP REGIMEN
     Route: 065
  11. CYCLOPHOSPHAMIDE [Suspect]
     Active Substance: CYCLOPHOSPHAMIDE
     Indication: Diffuse large B-cell lymphoma recurrent
     Dosage: UNK UNK, CYCLE; LATER 2 CYCLES
     Route: 065
  12. CYCLOPHOSPHAMIDE [Suspect]
     Active Substance: CYCLOPHOSPHAMIDE
     Indication: Acute myeloid leukaemia
  13. CYCLOPHOSPHAMIDE [Suspect]
     Active Substance: CYCLOPHOSPHAMIDE
     Indication: 5q minus syndrome
  14. VINCRISTINE [Suspect]
     Active Substance: VINCRISTINE
     Indication: Diffuse large B-cell lymphoma
     Dosage: UNK UNK, CYCLE; 5 CYCLES OF R-CHOP REGIMEN
     Route: 065
  15. VINCRISTINE [Suspect]
     Active Substance: VINCRISTINE
     Indication: Diffuse large B-cell lymphoma recurrent
     Dosage: UNK UNK, CYCLE; LATER 2 CYCLES
     Route: 065
  16. VINCRISTINE [Suspect]
     Active Substance: VINCRISTINE
     Indication: Acute myeloid leukaemia
  17. VINCRISTINE [Suspect]
     Active Substance: VINCRISTINE
     Indication: 5q minus syndrome
  18. OBINUTUZUMAB [Suspect]
     Active Substance: OBINUTUZUMAB
     Indication: Diffuse large B-cell lymphoma recurrent
     Dosage: UNK UNK, CYCLE; 2 CYCLES
     Route: 065
  19. OBINUTUZUMAB [Suspect]
     Active Substance: OBINUTUZUMAB
     Indication: Acute myeloid leukaemia
  20. OBINUTUZUMAB [Suspect]
     Active Substance: OBINUTUZUMAB
     Indication: 5q minus syndrome
  21. VENETOCLAX [Suspect]
     Active Substance: VENETOCLAX
     Indication: Diffuse large B-cell lymphoma recurrent
     Dosage: UNK UNK, CYCLE; 2 CYCLES
     Route: 065
  22. VENETOCLAX [Suspect]
     Active Substance: VENETOCLAX
     Indication: Acute myeloid leukaemia
  23. VENETOCLAX [Suspect]
     Active Substance: VENETOCLAX
     Indication: 5q minus syndrome

REACTIONS (6)
  - Febrile neutropenia [Unknown]
  - Staphylococcal sepsis [Unknown]
  - Bacillus bacteraemia [Unknown]
  - Brain abscess [Unknown]
  - Endocarditis bacterial [Unknown]
  - Clostridium difficile infection [Unknown]
